FAERS Safety Report 18117998 (Version 1)
Quarter: 2020Q3

REPORT INFORMATION
  Report Type: Spontaneous
  Country: US (occurrence: US)
  Receive Date: 20200806
  Receipt Date: 20200806
  Transmission Date: 20201103
  Serious: No
  Sender: FDA-Public Use
  Company Number: US-KARYOPHARM-2020KPT000807

PATIENT

DRUGS (1)
  1. XPOVIO [Suspect]
     Active Substance: SELINEXOR
     Indication: PLASMA CELL MYELOMA
     Dosage: UNK
     Dates: start: 20200520, end: 20200603

REACTIONS (3)
  - Asthenia [Unknown]
  - Drug ineffective [Unknown]
  - Neurological symptom [Unknown]

NARRATIVE: CASE EVENT DATE: 20200521
